FAERS Safety Report 10647407 (Version 1)
Quarter: 2014Q4

REPORT INFORMATION
  Report Type: Spontaneous
  Country: US (occurrence: US)
  Receive Date: 20141211
  Receipt Date: 20141211
  Transmission Date: 20150529
  Serious: Yes (Other)
  Sender: FDA-Public Use
  Company Number: US-PFIZER INC-2014335358

PATIENT
  Age: 61 Year
  Sex: Male

DRUGS (2)
  1. PENICILLIN G PROCAINE. [Suspect]
     Active Substance: PENICILLIN G PROCAINE
     Indication: CELLULITIS
     Dosage: 600000 IU (UNITS), 4X/DAY (EVERY 6 HOURS)
     Route: 042
  2. BENZYLPENICILLIN [Concomitant]
     Active Substance: PENICILLIN G
     Indication: CELLULITIS
     Dosage: 600000 IU (UNITS), 4X/DAY (EVERY 6 HOURS)
     Route: 042

REACTIONS (7)
  - Cyanosis [Recovered/Resolved]
  - Seizure [Recovered/Resolved]
  - Cardio-respiratory arrest [Recovered/Resolved]
  - Anaphylactic reaction [Recovered/Resolved]
  - Unresponsive to stimuli [Recovered/Resolved]
  - Wrong drug administered [Recovered/Resolved]
  - Toxicity to various agents [Recovered/Resolved]
